FAERS Safety Report 9023453 (Version 1)
Quarter: 2013Q1

REPORT INFORMATION
  Report Type: Report from Study
  Country: DE (occurrence: DE)
  Receive Date: 20130121
  Receipt Date: 20130121
  Transmission Date: 20140127
  Serious: Yes (Hospitalization)
  Sender: FDA-Public Use
  Company Number: DE-BAXTER-2013BAX002155

PATIENT
  Age: 69 None
  Sex: Female
  Weight: 63 kg

DRUGS (4)
  1. ENDOXAN 1G [Suspect]
     Indication: LYMPHOMA
     Route: 042
     Dates: start: 20110917
  2. RITUXIMAB [Suspect]
     Indication: LYMPHOMA
     Route: 042
     Dates: start: 20110916
  3. DOXORUBICIN [Suspect]
     Indication: LYMPHOMA
     Route: 042
     Dates: start: 20110917
  4. VINCRISTINE [Suspect]
     Indication: LYMPHOMA
     Route: 065
     Dates: start: 20110917

REACTIONS (3)
  - Nausea [Recovered/Resolved]
  - Vomiting [Recovered/Resolved]
  - Oral candidiasis [Unknown]
